FAERS Safety Report 9418129 (Version 1)
Quarter: 2013Q3

REPORT INFORMATION
  Report Type: Spontaneous
  Country: AU (occurrence: AU)
  Receive Date: 20130724
  Receipt Date: 20130724
  Transmission Date: 20140515
  Serious: Yes (Hospitalization)
  Sender: FDA-Public Use
  Company Number: AU-009507513-1307AUS009323

PATIENT
  Age: 2 Year
  Sex: Female

DRUGS (6)
  1. LORATADINE [Suspect]
     Dosage: 6
     Route: 048
     Dates: start: 20120711
  2. NUROFEN [Suspect]
     Dosage: 2 MISSING
     Route: 048
     Dates: start: 20120711
  3. CARTIA (ASPIRIN) [Suspect]
     Dosage: 2 MISSING
     Route: 048
     Dates: start: 20120711
  4. ESTRADIOL (+) LEVONORGESTREL [Suspect]
     Dosage: SOME
     Dates: start: 20120711
  5. SUDAFED COLD AND COUGH (ACETAMINOPHEN (+) DEXTROMETHORPHAN HYDROBROMID [Suspect]
     Dosage: 5
     Route: 048
     Dates: start: 20120711
  6. PARACETAMOL TABLETS BP [Suspect]
     Dosage: 3
     Route: 048
     Dates: start: 20120711

REACTIONS (2)
  - Accidental overdose [Unknown]
  - Accidental exposure to product by child [Unknown]
